FAERS Safety Report 8795207 (Version 3)
Quarter: 2013Q1

REPORT INFORMATION
  Report Type: Spontaneous
  Country: US (occurrence: FR)
  Receive Date: 20120918
  Receipt Date: 20130321
  Transmission Date: 20140127
  Serious: Yes (Death, Hospitalization)
  Sender: FDA-Public Use
  Company Number: US-009507513-1209USA003068

PATIENT
  Sex: Male

DRUGS (15)
  1. ISENTRESS [Suspect]
     Dosage: 400 MG, BID
     Route: 048
  2. EPIVIR [Suspect]
     Dosage: 15 ML, BID
     Route: 048
  3. RETROVIR [Suspect]
     Dosage: 300 MG, BID
     Route: 042
  4. ANSATIPINE [Suspect]
     Dosage: 150 MG, UNK
     Route: 048
  5. VALGANCICLOVIR HYDROCHLORIDE [Suspect]
     Dosage: 300 MG, EVERY 3 DAYS
     Route: 042
  6. FUZEON [Suspect]
     Dosage: UNK
     Route: 058
  7. AZITHROMYCIN [Suspect]
     Dosage: 500 MG, UNK
     Route: 048
  8. BACTRIM [Suspect]
     Dosage: 1 AMP PER DAY
     Route: 042
  9. INTELENCE [Suspect]
     Route: 048
  10. ETHAMBUTOL HYDROCHLORIDE [Suspect]
     Route: 042
  11. MEGESTROL ACETATE [Concomitant]
  12. TRUVADA [Concomitant]
  13. RITONAVIR [Concomitant]
  14. DARUNAVIR [Concomitant]
  15. MEDROL [Concomitant]

REACTIONS (3)
  - Leukopenia [Fatal]
  - Pancytopenia [Fatal]
  - Neutropenia [Fatal]
